FAERS Safety Report 12694727 (Version 1)
Quarter: 2016Q3

REPORT INFORMATION
  Report Type: Spontaneous
  Country: None (occurrence: GB)
  Receive Date: 20160829
  Receipt Date: 20160829
  Transmission Date: 20161109
  Serious: Yes (Other)
  Sender: FDA-Public Use
  Company Number: GB-OTSUKA-000828

PATIENT
  Sex: Male

DRUGS (3)
  1. ASPIRIN. [Concomitant]
     Active Substance: ASPIRIN
     Indication: INTERMITTENT CLAUDICATION
     Dosage: 75 MG, UNK
     Route: 048
     Dates: start: 20030527
  2. ADALAT [Concomitant]
     Active Substance: NIFEDIPINE
     Indication: INTERMITTENT CLAUDICATION
     Dosage: 50 MG, UNK
     Route: 048
     Dates: start: 20030527
  3. PLETAL [Suspect]
     Active Substance: CILOSTAZOL
     Indication: INTERMITTENT CLAUDICATION
     Dosage: 100 MG, BID
     Route: 048
     Dates: start: 20040316

REACTIONS (2)
  - Weight decreased [Unknown]
  - Hyperthyroidism [Unknown]

NARRATIVE: CASE EVENT DATE: 20040316
